FAERS Safety Report 14662925 (Version 2)
Quarter: 2018Q4

REPORT INFORMATION
  Report Type: Spontaneous
  Country: TH (occurrence: TH)
  Receive Date: 20180321
  Receipt Date: 20181011
  Transmission Date: 20190204
  Serious: Yes (Life-Threatening)
  Sender: FDA-Public Use
  Company Number: TH-NOVITIUM PHARMA LLC-2018-TH-000015

PATIENT
  Age: 56 Year
  Sex: Female

DRUGS (5)
  1. DAPSONE. [Suspect]
     Active Substance: DAPSONE
     Indication: MIXED CONNECTIVE TISSUE DISEASE
     Dosage: 100 MG PER DAY
     Route: 065
  2. METHOTREXATE. [Concomitant]
     Active Substance: METHOTREXATE
     Indication: PRODUCT USED FOR UNKNOWN INDICATION
     Route: 065
  3. CEFTAZIDIME. [Concomitant]
     Active Substance: CEFTAZIDIME
     Indication: PRODUCT USED FOR UNKNOWN INDICATION
     Route: 065
  4. AZATHIOPRINE. [Concomitant]
     Active Substance: AZATHIOPRINE
     Indication: PRODUCT USED FOR UNKNOWN INDICATION
     Route: 065
  5. ETORICOXIB. [Concomitant]
     Active Substance: ETORICOXIB
     Indication: PRODUCT USED FOR UNKNOWN INDICATION
     Route: 065

REACTIONS (10)
  - Pyrexia [None]
  - Lactic acidosis [Unknown]
  - Jaundice [None]
  - Renal failure [Unknown]
  - Toxic epidermal necrolysis [Unknown]
  - Product use in unapproved indication [None]
  - Sepsis [Unknown]
  - Hepatitis [Unknown]
  - Acute respiratory distress syndrome [Unknown]
  - Rash maculo-papular [None]
